FAERS Safety Report 8687683 (Version 2)
Quarter: 2012Q4

REPORT INFORMATION
  Report Type: Report from Study
  Country: DE (occurrence: DE)
  Receive Date: 20120727
  Receipt Date: 20120831
  Transmission Date: 20130627
  Serious: Yes (Hospitalization)
  Sender: FDA-Public Use
  Company Number: PHHY2012DE044473

PATIENT
  Sex: Male
  Weight: 52 kg

DRUGS (7)
  1. FTY 720 [Suspect]
     Indication: MULTIPLE SCLEROSIS
     Dosage: 0.5 mg, QD
     Route: 048
     Dates: start: 20111025, end: 20120323
  2. FTY 720 [Suspect]
     Dosage: 0.5 mg, QD
     Route: 048
     Dates: start: 20120327, end: 20120702
  3. FTY 720 [Suspect]
     Dosage: 0.5 mg, QD
     Route: 048
     Dates: start: 20120707
  4. SIRDALUD [Concomitant]
     Indication: MUSCLE SPASTICITY
     Dosage: 2 DF, QD
     Route: 048
     Dates: start: 20040501
  5. PHYSIOTHERAPY [Concomitant]
     Indication: MOVEMENT DISORDER
     Dosage: UNK UKN, QW
     Dates: start: 19780601
  6. CALCIUM D3 [Concomitant]
     Indication: CALCIUM DEFICIENCY
     Dosage: 1 DF, QD
     Route: 048
  7. BOTOX [Concomitant]
     Indication: MUSCLE SPASTICITY
     Dates: start: 20120419

REACTIONS (3)
  - Calculus bladder [Recovered/Resolved]
  - Hypertonic bladder [Recovered/Resolved]
  - Gastroenteritis [Recovered/Resolved]
